FAERS Safety Report 5921678-7 (Version None)
Quarter: 2008Q4

REPORT INFORMATION
  Report Type: 
  Country: None (occurrence: None)
  Receive Date: 20081016
  Receipt Date: 20081016
  Transmission Date: 20090506
  Serious: No
  Sender: FDA-Public Use
  Company Number: None

PATIENT
  Age: 65 Year
  Sex: Male
  Weight: 86.1834 kg

DRUGS (1)
  1. IMIQUAD [Suspect]

REACTIONS (3)
  - DIZZINESS [None]
  - NASAL DISCOMFORT [None]
  - NAUSEA [None]
